FAERS Safety Report 14591331 (Version 1)
Quarter: 2018Q1

REPORT INFORMATION
  Report Type: Spontaneous
  Country: US (occurrence: US)
  Receive Date: 20180301
  Receipt Date: 20180301
  Transmission Date: 20180509
  Serious: Yes (Hospitalization)
  Sender: FDA-Public Use
  Company Number: None

PATIENT
  Age: 66 Year
  Sex: Male

DRUGS (1)
  1. SUTENT [Suspect]
     Active Substance: SUNITINIB MALATE
     Indication: RENAL CANCER
     Dosage: 50 MG QD X 14 DAY PO
     Route: 048
     Dates: start: 20180117

REACTIONS (5)
  - Skin exfoliation [None]
  - Hair colour changes [None]
  - Surgery [None]
  - Glossodynia [None]
  - Basal cell carcinoma [None]

NARRATIVE: CASE EVENT DATE: 201802
